FAERS Safety Report 8119545-6 (Version None)
Quarter: 2012Q1

REPORT INFORMATION
  Report Type: 
  Country: None (occurrence: None)
  Receive Date: 20120207
  Receipt Date: 20120130
  Transmission Date: 20120608
  Serious: Yes (Other)
  Sender: FDA-Public Use
  Company Number: PHHY2012NL002216

PATIENT
  Sex: Male

DRUGS (4)
  1. ZOMETA [Suspect]
     Indication: PROSTATE CANCER METASTATIC
     Dosage: 4 MG/100ML ONCE PER 21 DAYS
     Dates: start: 20110901
  2. ZOMETA [Suspect]
     Dosage: 4 MG/100ML ONCE PER 21 DAYS
     Dates: start: 20120130, end: 20120130
  3. ZOMETA [Suspect]
     Dosage: 4 MG/100ML ONCE PER 21 DAYS
     Dates: start: 20111215
  4. ZOMETA [Suspect]
     Dosage: 4 MG/100ML ONCE PER 21 DAYS
     Dates: start: 20120110

REACTIONS (7)
  - NEOPLASM PROGRESSION [None]
  - FATIGUE [None]
  - NEOPLASM MALIGNANT [None]
  - SKIN DISCOLOURATION [None]
  - GENERAL PHYSICAL HEALTH DETERIORATION [None]
  - FEELING OF DESPAIR [None]
  - TERMINAL STATE [None]
